FAERS Safety Report 6148061-6 (Version None)
Quarter: 2009Q2

REPORT INFORMATION
  Report Type: 
  Country: None (occurrence: None)
  Receive Date: 20090408
  Receipt Date: 20090402
  Transmission Date: 20091009
  Serious: Yes (Hospitalization)
  Sender: FDA-Public Use
  Company Number: B0557646A

PATIENT
  Age: 7 Year
  Sex: Female
  Weight: 12 kg

DRUGS (7)
  1. LAMICTAL [Suspect]
     Indication: EPILEPSY
     Dosage: 3MG TWICE PER DAY
     Route: 048
     Dates: start: 20090119, end: 20090201
  2. ALEVIATIN [Concomitant]
     Indication: EPILEPSY
     Dosage: 130MG PER DAY
     Route: 048
  3. RIVOTRIL [Concomitant]
     Indication: EPILEPSY
     Dosage: 1.1MG PER DAY
     Route: 048
  4. EXCEGRAN [Concomitant]
     Indication: EPILEPSY
     Dosage: 90MG PER DAY
     Route: 048
  5. PRIMIDONE [Concomitant]
     Indication: EPILEPSY
     Dosage: .15G PER DAY
     Route: 048
  6. MONILAC [Concomitant]
     Route: 048
  7. PANTOSIN [Concomitant]

REACTIONS (7)
  - C-REACTIVE PROTEIN INCREASED [None]
  - CONJUNCTIVAL DISCOLOURATION [None]
  - HAND-FOOT-AND-MOUTH DISEASE [None]
  - PYREXIA [None]
  - RASH [None]
  - RASH PAPULAR [None]
  - STOMATITIS [None]
